FAERS Safety Report 6542247-4 (Version None)
Quarter: 2010Q1

REPORT INFORMATION
  Report Type: 
  Country: None (occurrence: None)
  Receive Date: 20100119
  Receipt Date: 20100115
  Transmission Date: 20100710
  Serious: Yes (Hospitalization)
  Sender: FDA-Public Use
  Company Number: B0626934A

PATIENT
  Sex: Female

DRUGS (2)
  1. AUGMENTIN '125' [Suspect]
     Indication: TOOTH DISORDER
     Route: 065
     Dates: start: 20091124, end: 20091201
  2. NORVASC [Concomitant]
     Dates: start: 20081204, end: 20091204

REACTIONS (2)
  - EYELID OEDEMA [None]
  - PRURITUS GENERALISED [None]
